FAERS Safety Report 7091250-7 (Version None)
Quarter: 2010Q4

REPORT INFORMATION
  Report Type: 
  Country: None (occurrence: None)
  Receive Date: 20101109
  Receipt Date: 20101102
  Transmission Date: 20110411
  Serious: Yes (Hospitalization, Disabling)
  Sender: FDA-Public Use
  Company Number: B0673670A

PATIENT
  Sex: Male

DRUGS (3)
  1. ALLI [Suspect]
     Dosage: 80MG UNKNOWN
     Route: 065
  2. MESALAZINE [Concomitant]
  3. UNKNOWN DRUG [Concomitant]

REACTIONS (2)
  - ILL-DEFINED DISORDER [None]
  - MALAISE [None]
